FAERS Safety Report 13039408 (Version 2)
Quarter: 2016Q4

REPORT INFORMATION
  Report Type: Spontaneous
  Country: DE (occurrence: DE)
  Receive Date: 20161219
  Receipt Date: 20161221
  Transmission Date: 20170207
  Serious: Yes (Other)
  Sender: FDA-Public Use
  Company Number: DE-ASTELLAS-2016US049049

PATIENT
  Sex: Male

DRUGS (3)
  1. VESIKUR [Suspect]
     Active Substance: SOLIFENACIN SUCCINATE
     Indication: BLADDER IRRITATION
     Dosage: UNK, UNKNOWN FREQ.
     Route: 065
     Dates: start: 2015
  2. VESIKUR [Suspect]
     Active Substance: SOLIFENACIN SUCCINATE
     Dosage: UNK, UNKNOWN FREQ.
     Route: 065
     Dates: start: 2015
  3. IBUPROFEN. [Concomitant]
     Active Substance: IBUPROFEN
     Indication: PAIN
     Dosage: UNK UNK, UNKNOWN FREQ.
     Route: 065

REACTIONS (7)
  - Visual acuity reduced [Unknown]
  - Lacrimation increased [Unknown]
  - Pruritus [Unknown]
  - Muscular weakness [Unknown]
  - Treatment noncompliance [Unknown]
  - Vision blurred [Unknown]
  - Dry mouth [Unknown]
